FAERS Safety Report 7270173-4 (Version None)
Quarter: 2011Q1

REPORT INFORMATION
  Report Type: 
  Country: None (occurrence: None)
  Receive Date: 20110202
  Receipt Date: 20110127
  Transmission Date: 20110831
  Serious: Yes (Hospitalization)
  Sender: FDA-Public Use
  Company Number: BR-US-EMD SERONO, INC.-7010379

PATIENT
  Sex: Male

DRUGS (4)
  1. REBIF [Suspect]
     Route: 058
     Dates: start: 20070101
  2. BACLOFEN [Concomitant]
  3. REBIF [Suspect]
     Indication: SECONDARY PROGRESSIVE MULTIPLE SCLEROSIS
     Route: 058
     Dates: start: 20060801
  4. MANTIDAN [Concomitant]

REACTIONS (2)
  - TRANSIENT ISCHAEMIC ATTACK [None]
  - ARRHYTHMIA [None]
